FAERS Safety Report 8137521-4 (Version None)
Quarter: 2012Q1

REPORT INFORMATION
  Report Type: 
  Country: None (occurrence: None)
  Receive Date: 20120103
  Receipt Date: 20110929
  Transmission Date: 20120608
  Serious: No
  Sender: FDA-Public Use
  Company Number: AE-2011-001388

PATIENT
  Sex: Male

DRUGS (6)
  1. INCIVEK [Suspect]
     Dosage: ORAL
     Route: 048
  2. MULTIVITAMIN [Concomitant]
  3. MILK THISTLE (HERBAL PREPARATION) [Concomitant]
  4. RIBAVIRIN [Concomitant]
  5. OMEPRAZOLE [Concomitant]
  6. PEGASYS [Concomitant]

REACTIONS (1)
  - BILIARY COLIC [None]
